FAERS Safety Report 8115791-6 (Version None)
Quarter: 2011Q4

REPORT INFORMATION
  Report Type: 
  Country: None (occurrence: None)
  Receive Date: 20111227
  Receipt Date: 20110906
  Transmission Date: 20120403
  Serious: Yes (Other)
  Sender: FDA-Public Use
  Company Number: PHHY2011US02869

PATIENT
  Age: 48 Year
  Sex: Female

DRUGS (18)
  1. GILENYA [Suspect]
     Indication: MULTIPLE SCLEROSIS
     Dosage: 0.5 MG, QD, ORAL
     Route: 048
     Dates: start: 20110105
  2. NEURONTIN [Concomitant]
  3. VITAMIN B12 [Concomitant]
  4. CYMBALTA [Concomitant]
  5. LEVOTHYROID (LEVOTHYROXINE SODIUM) [Concomitant]
  6. ZYPREXA [Concomitant]
  7. VITAMIN D [Concomitant]
  8. ASPIRIN [Concomitant]
  9. AMBIEN [Concomitant]
  10. TIZANIDINE HCL [Concomitant]
  11. TYSABRI [Concomitant]
  12. SPIRONOLACTONE [Concomitant]
  13. MAGNESIUM OXIDE (MAGNESIUM OXIDE) [Concomitant]
  14. LEVOTHYROXINE SODIUM [Concomitant]
  15. VITAMIN D [Concomitant]
  16. ZOLPIDEM [Concomitant]
  17. LIOTHYROXINE (LIOTHYROXINE) [Concomitant]
  18. CELEBREX [Concomitant]

REACTIONS (1)
  - HYPERTENSION [None]
